FAERS Safety Report 8763289 (Version 1)
Quarter: 2012Q4

REPORT INFORMATION
  Report Type: Report from Study
  Country: US (occurrence: US)
  Receive Date: 20120831
  Receipt Date: 20120831
  Transmission Date: 20130627
  Serious: Yes (Other)
  Sender: FDA-Public Use
  Company Number: US-CELGENEUS-163-C4047-12082505

PATIENT
  Age: 73 Year
  Sex: Male
  Weight: 90 kg

DRUGS (15)
  1. CC-4047 [Suspect]
     Dosage: 4 Milligram
     Route: 048
     Dates: start: 20120507, end: 20120702
  2. DEXAMETHASONE [Suspect]
     Indication: MULTIPLE MYELOMA
     Dosage: 8 Milligram
     Route: 048
  3. REVLIMID [Suspect]
     Indication: MULTIPLE MYELOMA
     Route: 048
     Dates: start: 201009, end: 201010
  4. ASA [Concomitant]
     Indication: ANTICOAGULANT THERAPY
     Dosage: 325 Milligram
     Route: 048
  5. AGGRENOX [Concomitant]
     Indication: PROPHYLAXIS
     Dosage: 200-25mg
     Route: 048
     Dates: start: 2011
  6. ALEVE [Concomitant]
     Indication: PAIN
     Dosage: 1 Tablet
     Route: 048
  7. ALEVE [Concomitant]
     Indication: SWELLING
  8. CALCIUM CARBONATE-VITAMIN D [Concomitant]
     Indication: DRUG USE FOR UNKNOWN INDICATION
     Dosage: 600-125 mg-unit
     Route: 048
  9. MULTIVITAMIN [Concomitant]
     Indication: DRUG USE FOR UNKNOWN INDICATION
     Dosage: 1 Tablet
     Route: 048
  10. PAROXETINE [Concomitant]
     Indication: DRUG USE FOR UNKNOWN INDICATION
     Dosage: 40 Milligram
     Route: 048
  11. PAXIL [Concomitant]
     Indication: DRUG USE FOR UNKNOWN INDICATION
     Dosage: 40 Milligram
     Route: 048
  12. SENNA-S [Concomitant]
     Indication: CONSTIPATION
     Dosage: 1-2 tablets
     Route: 048
  13. SIMVASTATIN [Concomitant]
     Indication: DRUG USE FOR UNKNOWN INDICATION
     Dosage: 20 Milligram
     Route: 048
  14. VALTREX [Concomitant]
     Indication: HERPES SIMPLEX
     Dosage: 1 Tablet
     Route: 048
  15. VITAMIN D3 [Concomitant]
     Indication: DRUG USE FOR UNKNOWN INDICATION
     Dosage: 2000 IU (International Unit)
     Route: 048

REACTIONS (1)
  - Myelodysplastic syndrome [Not Recovered/Not Resolved]
